FAERS Safety Report 6112413-0 (Version None)
Quarter: 2009Q1

REPORT INFORMATION
  Report Type: 
  Country: None (occurrence: None)
  Receive Date: 20090311
  Receipt Date: 20090311
  Transmission Date: 20090719
  Serious: No
  Sender: FDA-Public Use
  Company Number: None

PATIENT
  Age: 58 Year
  Sex: Male
  Weight: 159 kg

DRUGS (2)
  1. IMIPRAMINE [Suspect]
     Indication: BENIGN PROSTATIC HYPERPLASIA
     Dosage: 1 TAB BID PO
     Route: 048
     Dates: start: 20090110, end: 20090211
  2. IMIPRAMINE [Suspect]
     Indication: URGE INCONTINENCE
     Dosage: 1 TAB BID PO
     Route: 048
     Dates: start: 20090110, end: 20090211

REACTIONS (1)
  - HYPERTENSION [None]
